FAERS Safety Report 25972280 (Version 2)
Quarter: 2025Q4

REPORT INFORMATION
  Report Type: Spontaneous
  Country: US (occurrence: US)
  Receive Date: 20251029
  Receipt Date: 20251105
  Transmission Date: 20260118
  Serious: No
  Sender: TOLMAR
  Company Number: US-Tolmar-TLM-2025-07908

PATIENT

DRUGS (2)
  1. FENSOLVI [Suspect]
     Active Substance: LEUPROLIDE ACETATE
     Indication: Gender dysphoria
     Dosage: SERIAL NUMBER 2433257573011?NDC NUMBER 62935-163-60 ?GTIN 00362935163602
  2. DEVICE [Suspect]
     Active Substance: DEVICE
     Indication: Gender dysphoria
     Dosage: SERIAL NUMBER 2433257573011?NDC NUMBER 62935-163-60 ?GTIN 00362935163602

REACTIONS (3)
  - Intercepted product preparation error [Unknown]
  - Device leakage [Unknown]
  - Off label use [Unknown]
